FAERS Safety Report 4457282-X (Version None)
Quarter: 2004Q3

REPORT INFORMATION
  Report Type: 
  Country: None (occurrence: None)
  Receive Date: 20040922
  Receipt Date: 20040909
  Transmission Date: 20050211
  Serious: Yes (Hospitalization, Other)
  Sender: FDA-Public Use
  Company Number: 2003010033

PATIENT
  Age: 31 Year
  Sex: Female
  Weight: 79.8331 kg

DRUGS (6)
  1. GEODON [Suspect]
     Indication: HALLUCINATION
     Dosage: 80 MG (40 MG, 2 IN 1 D), ORAL
     Route: 048
     Dates: start: 20030226, end: 20030227
  2. GEODON [Suspect]
     Indication: HALLUCINATION, AUDITORY
     Dosage: 80 MG (40 MG, 2 IN 1 D), ORAL
     Route: 048
     Dates: start: 20030226, end: 20030227
  3. SERTRALINE HCL [Concomitant]
  4. METRONIDAZOLE [Concomitant]
  5. BACTRIM [Concomitant]
  6. TRIAMCINOLONE [Concomitant]

REACTIONS (5)
  - ANXIETY [None]
  - DYSPNOEA [None]
  - DYSTONIA [None]
  - TONGUE DISORDER [None]
  - TORTICOLLIS [None]
